FAERS Safety Report 8492061 (Version 3)
Quarter: 2012Q4

REPORT INFORMATION
  Report Type: 
  Country: US (occurrence: US)
  Receive Date: 20120403
  Receipt Date: 20120904
  Transmission Date: 20130627
  Serious: Yes (Hospitalization)
  Sender: FDA-Public Use
  Company Number: US-BAYER-2012-029768

PATIENT
  Age: 22 Year
  Sex: Female
  Weight: 62.59 kg

DRUGS (4)
  1. OCELLA [Suspect]
     Dosage: UNK
     Route: 048
     Dates: start: 201002, end: 201003
  2. YASMIN [Suspect]
     Dosage: UNK
     Dates: start: 201003, end: 201005
  3. ANTIBIOTICS [Concomitant]
     Indication: ACNE
     Dosage: UNK
     Dates: start: 2005, end: 2010
  4. CEFADROXIL [Concomitant]
     Dosage: 500 mg, UNK
     Dates: start: 20100202

REACTIONS (8)
  - Pulmonary embolism [None]
  - Injury [None]
  - General physical health deterioration [None]
  - Anxiety [None]
  - General physical health deterioration [None]
  - Pain [None]
  - Pain [None]
  - Emotional distress [None]
